FAERS Safety Report 9960965 (Version 1)
Quarter: 2014Q1

REPORT INFORMATION
  Report Type: Report from Study
  Country: US (occurrence: US)
  Receive Date: 20140305
  Receipt Date: 20140305
  Transmission Date: 20141002
  Serious: No
  Sender: FDA-Public Use
  Company Number: US-ABBVIE-13P-163-1108007-00

PATIENT
  Age: 53 Year
  Sex: Female

DRUGS (15)
  1. HUMIRA [Suspect]
     Indication: COLITIS ULCERATIVE
     Dates: start: 201304
  2. INSTAFLEX [Concomitant]
     Indication: MOBILITY DECREASED
  3. INSTAFLEX [Concomitant]
     Indication: ARTHROPATHY
  4. ASHWAGANDHA [Concomitant]
     Indication: STRESS
  5. KYOLIC AGED GARLIC EXTRACT [Concomitant]
     Indication: INFLAMMATORY BOWEL DISEASE
  6. CURCUMIN [Concomitant]
     Indication: INFLAMMATORY BOWEL DISEASE
  7. OMEGA 3 [Concomitant]
     Indication: MINERAL SUPPLEMENTATION
  8. VSL #3 PROBIOTIC [Concomitant]
     Indication: COLITIS ULCERATIVE
     Dosage: ONE PACKET DAILY
  9. VITAMIN D [Concomitant]
     Indication: PRODUCT USED FOR UNKNOWN INDICATION
  10. B12/B6/FOLIC ACID [Concomitant]
     Indication: VITAMIN SUPPLEMENTATION
  11. CALCIUM WITH VITAMIN D [Concomitant]
     Indication: PRODUCT USED FOR UNKNOWN INDICATION
  12. IRON [Concomitant]
     Indication: PRODUCT USED FOR UNKNOWN INDICATION
  13. TROPICAL PAPAYA [Concomitant]
     Indication: ENZYME ABNORMALITY
     Dosage: 4 CHEWS AFTER MEALS
  14. COQ10 [Concomitant]
     Indication: VITAMIN SUPPLEMENTATION
  15. KRILL OMEGA RED OIL [Concomitant]
     Indication: MINERAL SUPPLEMENTATION

REACTIONS (2)
  - Fatigue [Recovering/Resolving]
  - Feeling abnormal [Recovering/Resolving]
